FAERS Safety Report 22138878 (Version 2)
Quarter: 2023Q2

REPORT INFORMATION
  Report Type: Spontaneous
  Country: US (occurrence: None)
  Receive Date: 20230327
  Receipt Date: 20230420
  Transmission Date: 20230722
  Serious: No
  Sender: FDA-Public Use
  Company Number: 2023A068350

PATIENT
  Age: 75 Year
  Sex: Female
  Weight: 66.7 kg

DRUGS (2)
  1. TAGRISSO [Suspect]
     Active Substance: OSIMERTINIB
     Indication: Lung neoplasm malignant
     Route: 048
     Dates: start: 20230127, end: 20230209
  2. TAGRISSO [Suspect]
     Active Substance: OSIMERTINIB
     Indication: Lung neoplasm malignant
     Route: 048
     Dates: start: 20230213

REACTIONS (11)
  - Drug intolerance [Unknown]
  - Blood bilirubin increased [Recovered/Resolved]
  - Platelet count decreased [Not Recovered/Not Resolved]
  - Gastritis [Unknown]
  - Muscle spasms [Unknown]
  - Nausea [Unknown]
  - Fatigue [Unknown]
  - Diarrhoea [Unknown]
  - Decreased appetite [Unknown]
  - Depression [Unknown]
  - Intentional dose omission [Unknown]

NARRATIVE: CASE EVENT DATE: 20230205
